FAERS Safety Report 13638381 (Version 1)
Quarter: 2017Q2

REPORT INFORMATION
  Report Type: Spontaneous
  Country: US (occurrence: US)
  Receive Date: 20170609
  Receipt Date: 20170609
  Transmission Date: 20170830
  Serious: Yes (Other)
  Sender: FDA-Public Use
  Company Number: US-AMGEN-USASP2017074732

PATIENT
  Age: 37 Year
  Sex: Male

DRUGS (1)
  1. BLINCYTO [Suspect]
     Active Substance: BLINATUMOMAB
     Indication: ACUTE LYMPHOCYTIC LEUKAEMIA RECURRENT
     Dosage: 28 MCG, UNK
     Route: 065

REACTIONS (6)
  - Tachycardia [Unknown]
  - Anaemia [Unknown]
  - White blood cell count decreased [Unknown]
  - Liver function test increased [Unknown]
  - Pyrexia [Recovering/Resolving]
  - Neutropenia [Unknown]
